FAERS Safety Report 7659059-0 (Version None)
Quarter: 2011Q3

REPORT INFORMATION
  Report Type: 
  Country: None (occurrence: None)
  Receive Date: 20110805
  Receipt Date: 20110802
  Transmission Date: 20111222
  Serious: Yes (Hospitalization, Other)
  Sender: FDA-Public Use
  Company Number: CZ-PFIZER INC-2011042884

PATIENT
  Age: 60 Year
  Sex: Female

DRUGS (6)
  1. PRESTARIUM [Concomitant]
  2. LEXAURIN [Concomitant]
  3. MILURIT [Concomitant]
  4. SUTENT [Suspect]
     Indication: METASTATIC RENAL CELL CARCINOMA
     Dosage: 50 MG DAILY, 4 WEEKS ON, 2 WEEKS OFF
     Route: 048
     Dates: start: 20110308
  5. OMEPRAZOLE [Concomitant]
  6. TOLPERISONE HYDROCHLORIDE [Concomitant]

REACTIONS (3)
  - BRONCHITIS [None]
  - MUCOSAL INFLAMMATION [None]
  - THROMBOSIS [None]
